FAERS Safety Report 5706314-7 (Version None)
Quarter: 2008Q2

REPORT INFORMATION
  Report Type: 
  Country: None (occurrence: None)
  Receive Date: 20080409
  Receipt Date: 20070817
  Transmission Date: 20081010
  Serious: Yes (Hospitalization)
  Sender: FDA-Public Use
  Company Number: 141

PATIENT
  Sex: Male

DRUGS (5)
  1. FAZACLO ODT [Suspect]
     Indication: SCHIZOPHRENIA
     Dosage: 200 MG PO DAILY
     Route: 048
     Dates: start: 20050626, end: 20070627
  2. DEPAKOTE [Concomitant]
  3. TRAZODONE HCL [Concomitant]
  4. HALDOL [Concomitant]
  5. COGENTIN [Concomitant]

REACTIONS (1)
  - CONVULSION [None]
